FAERS Safety Report 6069570-4 (Version None)
Quarter: 2009Q1

REPORT INFORMATION
  Report Type: 
  Country: None (occurrence: None)
  Receive Date: 20090206
  Receipt Date: 20090123
  Transmission Date: 20090719
  Serious: Yes (Hospitalization, Other)
  Sender: FDA-Public Use
  Company Number: FR-GENENTECH-276366

PATIENT
  Sex: Female

DRUGS (3)
  1. BEVACIZUMAB [Suspect]
     Indication: NEOPLASM MALIGNANT
     Dosage: 2750 MG, Q3W
     Route: 042
     Dates: start: 20070917
  2. FLUOROURACIL [Suspect]
     Indication: NEOPLASM MALIGNANT
     Dosage: 2750 MG, Q6W
     Route: 042
     Dates: start: 20071117
  3. STREPTOZOCIN [Suspect]
     Indication: NEOPLASM MALIGNANT
     Dosage: 2300 MG, UNK
     Route: 042
     Dates: start: 20070917

REACTIONS (3)
  - FEBRILE NEUTROPENIA [None]
  - INFLUENZA LIKE ILLNESS [None]
  - PLEURAL EFFUSION [None]
